FAERS Safety Report 8116621-9 (Version None)
Quarter: 2012Q1

REPORT INFORMATION
  Report Type: 
  Country: None (occurrence: None)
  Receive Date: 20120206
  Receipt Date: 20120124
  Transmission Date: 20120608
  Serious: Yes (Hospitalization, Other)
  Sender: FDA-Public Use
  Company Number: PHHY2012BR007393

PATIENT
  Sex: Female

DRUGS (5)
  1. RANITIDINE [Concomitant]
     Dosage: UNK UKN, UNK
  2. CLONAZEPAM [Concomitant]
     Dosage: UNK UKN, UNK
  3. METICORTEN [Concomitant]
     Dosage: UNK UKN, UNK
  4. DIOVAN HCT [Suspect]
     Indication: HYPERTENSION
     Dosage: 1 DF (320/25 MG), DAILY
  5. SEROQUEL [Concomitant]
     Dosage: 25 MG, UNK

REACTIONS (11)
  - BLOOD POTASSIUM DECREASED [None]
  - CONFUSIONAL STATE [None]
  - BLOOD CALCIUM INCREASED [None]
  - NAUSEA [None]
  - PAIN [None]
  - URINARY TRACT INFECTION [None]
  - HYPERTENSION [None]
  - GAIT DISTURBANCE [None]
  - MEMORY IMPAIRMENT [None]
  - DYSSTASIA [None]
  - HEADACHE [None]
